FAERS Safety Report 24442818 (Version 1)
Quarter: 2024Q4

REPORT INFORMATION
  Report Type: Spontaneous
  Country: GB (occurrence: GB)
  Receive Date: 20241016
  Receipt Date: 20241016
  Transmission Date: 20250115
  Serious: Yes (Other)
  Sender: AMGEN
  Company Number: GB-AMGEN-GBRSP2024200422

PATIENT

DRUGS (3)
  1. PROLIA [Suspect]
     Active Substance: DENOSUMAB
     Indication: Aneurysmal bone cyst
     Dosage: 60 MILLIGRAM, QMO
     Route: 065
  2. ZOLEDRONIC ACID [Concomitant]
     Active Substance: ZOLEDRONIC ACID
     Indication: Calcium metabolism disorder
     Dosage: 0.025 - 0.050 MILLIGRAM/KILOGRAM, Q6MO
     Route: 042
  3. VITAMIN D [Concomitant]
     Active Substance: VITAMIN D NOS
     Dosage: UNK

REACTIONS (3)
  - Pathological fracture [Unknown]
  - Off label use [Unknown]
  - Bone disorder [Unknown]
